FAERS Safety Report 5669691-1 (Version None)
Quarter: 2008Q1

REPORT INFORMATION
  Report Type: 
  Country: None (occurrence: None)
  Receive Date: 20080317
  Receipt Date: 20080310
  Transmission Date: 20080703
  Serious: Yes (Other)
  Sender: FDA-Public Use
  Company Number: US-ABBOTT-08P-163-0441826-00

PATIENT
  Sex: Male
  Weight: 82.628 kg

DRUGS (2)
  1. SYNTHROID [Suspect]
     Indication: BLOOD THYROID STIMULATING HORMONE DECREASED
     Route: 048
     Dates: start: 20070831, end: 20080227
  2. SYNTHROID [Suspect]
     Route: 048
     Dates: start: 20080227

REACTIONS (9)
  - CHILLS [None]
  - DRY SKIN [None]
  - MYALGIA [None]
  - PALLOR [None]
  - RASH ERYTHEMATOUS [None]
  - RASH PRURITIC [None]
  - SQUAMOUS CELL CARCINOMA [None]
  - VASCULITIS [None]
  - VIRAL INFECTION [None]
